FAERS Safety Report 4417955-1 (Version None)
Quarter: 2004Q3

REPORT INFORMATION
  Report Type: 
  Country: None (occurrence: None)
  Receive Date: 20040803
  Receipt Date: 20040728
  Transmission Date: 20050211
  Serious: Yes (Hospitalization, Other)
  Sender: FDA-Public Use
  Company Number: 200412335GDS

PATIENT
  Age: 82 Year
  Sex: Female

DRUGS (2)
  1. ASPIRIN [Suspect]
     Indication: CEREBROVASCULAR ACCIDENT PROPHYLAXIS
  2. NSAIDS (NSAID'S) [Suspect]
     Indication: LOCALISED OSTEOARTHRITIS

REACTIONS (3)
  - COLITIS COLLAGENOUS [None]
  - HYPOKALAEMIA [None]
  - THERAPY NON-RESPONDER [None]
